FAERS Safety Report 16162791 (Version 1)
Quarter: 2019Q2

REPORT INFORMATION
  Report Type: Spontaneous
  Country: US (occurrence: US)
  Receive Date: 20190304
  Receipt Date: 20190304
  Transmission Date: 20190711
  Serious: Yes (Death)
  Sender: FDA-Public Use
  Company Number: None

PATIENT
  Age: 96 Year
  Sex: Male
  Weight: 83.46 kg

DRUGS (6)
  1. SIMVASTATIN. [Concomitant]
     Active Substance: SIMVASTATIN
  2. LUPRON [Concomitant]
     Active Substance: LEUPROLIDE ACETATE
  3. FUROSEMIDE. [Concomitant]
     Active Substance: FUROSEMIDE
  4. CASODEX [Concomitant]
     Active Substance: BICALUTAMIDE
  5. METFORMIN [Concomitant]
     Active Substance: METFORMIN HYDROCHLORIDE
  6. ABIRATERONE 250 MG [Suspect]
     Active Substance: ABIRATERONE
     Indication: PROSTATE CANCER
     Route: 048
     Dates: start: 20170209, end: 20171012

REACTIONS (1)
  - Death [None]

NARRATIVE: CASE EVENT DATE: 20190209
